FAERS Safety Report 15914671 (Version 1)
Quarter: 2019Q1

REPORT INFORMATION
  Report Type: Spontaneous
  Country: US (occurrence: US)
  Receive Date: 20190204
  Receipt Date: 20190204
  Transmission Date: 20190417
  Serious: No
  Sender: FDA-Public Use
  Company Number: US-ABBVIE-18K-163-2593230-00

PATIENT
  Age: 49 Year
  Sex: Female
  Weight: 77.18 kg

DRUGS (6)
  1. VITAMIN B [Concomitant]
     Active Substance: VITAMIN B
     Indication: VITAMIN SUPPLEMENTATION
  2. PROZAC [Concomitant]
     Active Substance: FLUOXETINE HYDROCHLORIDE
     Indication: ANTIDEPRESSANT THERAPY
  3. FISH OIL [Concomitant]
     Active Substance: FISH OIL
     Indication: CARDIAC DISORDER
  4. XANAX [Concomitant]
     Active Substance: ALPRAZOLAM
     Indication: ANXIETY
  5. MUTLIVITAMIN  (NON-ABBVIE) [Concomitant]
     Indication: VITAMIN SUPPLEMENTATION
  6. HUMIRA [Suspect]
     Active Substance: ADALIMUMAB
     Indication: PSORIASIS
     Route: 058
     Dates: start: 2017

REACTIONS (1)
  - Psoriasis [Not Recovered/Not Resolved]

NARRATIVE: CASE EVENT DATE: 20181208
